FAERS Safety Report 6129590-8 (Version None)
Quarter: 2009Q1

REPORT INFORMATION
  Report Type: 
  Country: None (occurrence: None)
  Receive Date: 20090324
  Receipt Date: 20090310
  Transmission Date: 20090719
  Serious: Yes (Death)
  Sender: FDA-Public Use
  Company Number: US-PFIZER INC-2002132606US

PATIENT
  Age: 30 Year

DRUGS (3)
  1. PHENYTOIN [Suspect]
     Indication: ILL-DEFINED DISORDER
     Route: 065
  2. ALDACTONE [Suspect]
     Indication: ILL-DEFINED DISORDER
     Route: 065
     Dates: start: 20010101, end: 20010101
  3. DILTIAZEM [Suspect]
     Indication: ILL-DEFINED DISORDER
     Route: 065
     Dates: start: 20010101, end: 20010101

REACTIONS (2)
  - COMPLETED SUICIDE [None]
  - INTENTIONAL OVERDOSE [None]
